FAERS Safety Report 5847555-8 (Version None)
Quarter: 2008Q3

REPORT INFORMATION
  Report Type: 
  Country: None (occurrence: None)
  Receive Date: 20080817
  Receipt Date: 20080804
  Transmission Date: 20090109
  Serious: Yes (Death)
  Sender: FDA-Public Use
  Company Number: GB-BAUSCH-2008BL003374

PATIENT
  Age: 44 Year
  Sex: Male

DRUGS (13)
  1. PREDNISOLONE [Suspect]
     Indication: ALLOGENIC BONE MARROW TRANSPLANTATION THERAPY
     Route: 048
  2. PREDNISOLONE [Suspect]
     Indication: CHRONIC MYELOID LEUKAEMIA
     Route: 048
  3. AZATHIOPRINE [Suspect]
     Indication: ALLOGENIC BONE MARROW TRANSPLANTATION THERAPY
  4. AZATHIOPRINE [Suspect]
     Indication: CHRONIC MYELOID LEUKAEMIA
  5. AZATHIOPRINE [Suspect]
     Indication: GRAFT VERSUS HOST DISEASE
  6. CYCLOSPORINE [Concomitant]
  7. METHOTREXATE [Concomitant]
  8. CYCLOPHOSPHAMIDE [Concomitant]
  9. CAMPATH /USA/ [Concomitant]
  10. ACYCLOVIR [Concomitant]
  11. FLUCONAZOLE [Concomitant]
  12. CIPROFLOXACIN [Concomitant]
  13. METHYLPREDNISOLONE 16MG TAB [Concomitant]

REACTIONS (5)
  - ADENOVIRAL HEPATITIS [None]
  - HERPES SIMPLEX [None]
  - PANCYTOPENIA [None]
  - RESPIRATORY DISORDER [None]
  - STOMATITIS [None]
